FAERS Safety Report 9511600 (Version 2)
Quarter: 2014Q1

REPORT INFORMATION
  Report Type: Spontaneous
  Country: US (occurrence: None)
  Receive Date: 20130305
  Receipt Date: 20140306
  Transmission Date: 20141002
  Serious: Yes (Other)
  Sender: FDA-Public Use
  Company Number: 163-21880-12111906

PATIENT
  Age: 88 Year
  Sex: Female
  Weight: 72.27 kg

DRUGS (1)
  1. REVLIMID [Suspect]
     Indication: PLASMA CELL MYELOMA
     Dosage: TEMPORARILY INTERRUPTED; 21 IN 21D, PO
     Route: 048
     Dates: start: 20100416

REACTIONS (10)
  - Seasonal allergy [None]
  - Ear pain [None]
  - Headache [None]
  - Drug dose omission [None]
  - Rhinorrhoea [None]
  - Vertigo [None]
  - Dizziness [None]
  - Paraesthesia [None]
  - Hypertension [None]
  - Sinusitis [None]
